FAERS Safety Report 4836225-0 (Version None)
Quarter: 2005Q4

REPORT INFORMATION
  Report Type: 
  Country: None (occurrence: None)
  Receive Date: 20051123
  Receipt Date: 20051121
  Transmission Date: 20060501
  Serious: Yes (Other)
  Sender: FDA-Public Use
  Company Number: US-JNJFOC-20051003421

PATIENT
  Sex: Male
  Weight: 102.06 kg

DRUGS (3)
  1. LEVAQUIN [Suspect]
     Indication: URINARY TRACT INFECTION
     Route: 048
  2. ASPIRIN [Concomitant]
  3. VITAMIN [Concomitant]
     Indication: NUTRITIONAL SUPPORT

REACTIONS (5)
  - MUSCLE INJURY [None]
  - OEDEMA PERIPHERAL [None]
  - RASH [None]
  - SKIN EXFOLIATION [None]
  - TENDON INJURY [None]
